FAERS Safety Report 23270062 (Version 1)
Quarter: 2023Q4

REPORT INFORMATION
  Report Type: Spontaneous
  Country: US (occurrence: US)
  Receive Date: 20231207
  Receipt Date: 20231207
  Transmission Date: 20240110
  Serious: No
  Sender: FDA-Public Use
  Company Number: US-drreddys-SPO/USA/23/0187230

PATIENT

DRUGS (1)
  1. FLUOXETINE [Suspect]
     Active Substance: FLUOXETINE HYDROCHLORIDE
     Indication: Product used for unknown indication
     Dosage: TABLET AS BLUE WITH WITH AN IMPRINT CODE OF: R, 0150, FOR 6 WEEKS

REACTIONS (2)
  - Periorbital swelling [Unknown]
  - Eye swelling [Unknown]

NARRATIVE: CASE EVENT DATE: 20231101
